FAERS Safety Report 10100350 (Version 2)
Quarter: 2014Q2

REPORT INFORMATION
  Report Type: Spontaneous
  Country: DE (occurrence: DE)
  Receive Date: 20140423
  Receipt Date: 20140519
  Transmission Date: 20141212
  Serious: Yes (Other)
  Sender: FDA-Public Use
  Company Number: DE-ABBVIE-14P-062-1228569-00

PATIENT
  Age: 59 Year
  Sex: Male

DRUGS (3)
  1. VALPROIC ACID [Suspect]
     Indication: EPILEPSY
  2. CARBAMAZEPINE [Suspect]
     Indication: EPILEPSY
  3. PHENOBARBITAL [Suspect]
     Indication: EPILEPSY

REACTIONS (9)
  - Drug reaction with eosinophilia and systemic symptoms [Unknown]
  - Pyrexia [Unknown]
  - Rash [Unknown]
  - General physical health deterioration [Unknown]
  - Leukocytosis [Unknown]
  - Eosinophilia [Unknown]
  - Transaminases increased [Unknown]
  - Papule [Unknown]
  - Nodule [Unknown]
